FAERS Safety Report 6217307-8 (Version None)
Quarter: 2009Q2

REPORT INFORMATION
  Report Type: 
  Country: None (occurrence: None)
  Receive Date: 20090608
  Receipt Date: 20090526
  Transmission Date: 20091009
  Serious: Yes (Other)
  Sender: FDA-Public Use
  Company Number: US-PFIZER INC-2009184568

PATIENT
  Sex: Female
  Weight: 72.562 kg

DRUGS (6)
  1. GEODON [Suspect]
     Indication: POST-TRAUMATIC STRESS DISORDER
     Dosage: 20 MG, 1X/DAY
     Route: 048
     Dates: start: 20030101
  2. GEODON [Suspect]
     Indication: BIPOLAR DISORDER
  3. ACETAMINOPHEN [Concomitant]
  4. THYROID TAB [Concomitant]
     Dosage: UNK
  5. NEURONTIN [Concomitant]
     Dosage: UNK
  6. AZITHROMYCIN [Concomitant]
     Dosage: UNK

REACTIONS (23)
  - ADVERSE EVENT [None]
  - ADVERSE REACTION [None]
  - ANGER [None]
  - ASTHENIA [None]
  - DRY EYE [None]
  - EATING DISORDER [None]
  - GASTROINTESTINAL CANDIDIASIS [None]
  - HYPOAESTHESIA [None]
  - MALAISE [None]
  - MUSCLE TIGHTNESS [None]
  - NASAL DRYNESS [None]
  - NAUSEA [None]
  - OEDEMA MOUTH [None]
  - OEDEMA PERIPHERAL [None]
  - PAIN [None]
  - PNEUMONIA [None]
  - POLLAKIURIA [None]
  - PRURITUS [None]
  - RASH [None]
  - SLEEP DISORDER [None]
  - SOMNOLENCE [None]
  - SWELLING [None]
  - WEIGHT INCREASED [None]
